FAERS Safety Report 11116803 (Version 1)
Quarter: 2015Q2

REPORT INFORMATION
  Report Type: Spontaneous
  Country: CH (occurrence: CH)
  Receive Date: 20150515
  Receipt Date: 20150515
  Transmission Date: 20150821
  Serious: Yes (Hospitalization, Other)
  Sender: FDA-Public Use
  Company Number: CH-009507513-1505CHE002842

PATIENT
  Age: 59 Year
  Sex: Male

DRUGS (6)
  1. METHOTREXATE [Suspect]
     Active Substance: METHOTREXATE
     Dosage: 125 MG AT ONCE
     Route: 030
     Dates: start: 20150306, end: 20150306
  2. COLCHICINE. [Suspect]
     Active Substance: COLCHICINE
     Dosage: 15 DF AT ONCE
     Route: 048
     Dates: start: 20150306, end: 20150306
  3. REMERON [Suspect]
     Active Substance: MIRTAZAPINE
     Dosage: 2 DF (60MG) AT ONCE
     Route: 048
     Dates: start: 20150306, end: 20150306
  4. MIDAZOLAM [Suspect]
     Active Substance: MIDAZOLAM\MIDAZOLAM HYDROCHLORIDE
     Dosage: 50 MG AT ONCE
     Dates: start: 20150306, end: 20150306
  5. ACETAMINOPHEN. [Suspect]
     Active Substance: ACETAMINOPHEN
     Dosage: 2 G AT ONCE
     Dates: start: 20150306, end: 20150306
  6. ALISKIREN [Suspect]
     Active Substance: ALISKIREN
     Dosage: 300 MG AT ONCE
     Dates: start: 20150306, end: 20150306

REACTIONS (6)
  - Intentional overdose [Unknown]
  - Poisoning [Recovering/Resolving]
  - Dizziness [Recovered/Resolved]
  - Diarrhoea [Recovered/Resolved]
  - Suicide attempt [Recovered/Resolved]
  - Vomiting [Recovered/Resolved]

NARRATIVE: CASE EVENT DATE: 20150306
